FAERS Safety Report 19087104 (Version 1)
Quarter: 2021Q2

REPORT INFORMATION
  Report Type: Spontaneous
  Country: US (occurrence: US)
  Receive Date: 20210402
  Receipt Date: 20210402
  Transmission Date: 20210717
  Serious: No
  Sender: FDA-Public Use
  Company Number: US-BAYER-2021-116508

PATIENT
  Age: 49 Year
  Sex: Male

DRUGS (1)
  1. ALEVE BACK AND MUSCLE PAIN [Suspect]
     Active Substance: NAPROXEN SODIUM
     Indication: PAIN
     Dosage: UNK,2 IN THE MORNING AND 2 IN THE AFTERNOON
     Route: 048
     Dates: start: 2020, end: 20210326

REACTIONS (3)
  - Drug ineffective [Unknown]
  - Extra dose administered [None]
  - Product lot number issue [None]
